FAERS Safety Report 9566046 (Version 2)
Quarter: 2013Q3

REPORT INFORMATION
  Report Type: Spontaneous
  Country: US (occurrence: US)
  Receive Date: 20130930
  Receipt Date: 20130930
  Transmission Date: 20140515
  Serious: Yes (Hospitalization)
  Sender: FDA-Public Use
  Company Number: US-BAXTER-2012BAX022575

PATIENT
  Age: 74 Year
  Sex: Female

DRUGS (4)
  1. DIANEAL LOW CALCIUM [Suspect]
     Indication: PERITONEAL DIALYSIS
     Route: 033
     Dates: end: 20111214
  2. DIANEAL LOW CALCIUM [Suspect]
     Route: 033
     Dates: start: 20120814, end: 20120820
  3. EXTRANEAL [Suspect]
     Indication: PERITONEAL DIALYSIS
     Route: 033
     Dates: end: 20111214
  4. EXTRANEAL [Suspect]
     Route: 033
     Dates: start: 20120814, end: 20120820

REACTIONS (4)
  - Peritonitis [Recovered/Resolved]
  - Peritonitis [Recovered/Resolved]
  - Inadequate aseptic technique in use of product [Unknown]
  - Dementia [Unknown]
